FAERS Safety Report 8356720-X (Version None)
Quarter: 2012Q2

REPORT INFORMATION
  Report Type: 
  Country: None (occurrence: None)
  Receive Date: 20120514
  Receipt Date: 20120510
  Transmission Date: 20120825
  Serious: Yes (Hospitalization)
  Sender: FDA-Public Use
  Company Number: PHHY2010CA74801

PATIENT
  Sex: Female

DRUGS (2)
  1. SANDOSTATIN LAR [Suspect]
     Indication: METASTATIC NEOPLASM
     Dosage: 20 MG EVERY FOUR WEEKS
     Route: 030
     Dates: start: 20100129
  2. SANDOSTATIN LAR [Suspect]
     Dosage: 30 MG, QMO
     Route: 030

REACTIONS (7)
  - LUNG DISORDER [None]
  - HIP FRACTURE [None]
  - COUGH [None]
  - ASTHENIA [None]
  - ANAEMIA [None]
  - LUNG INFECTION [None]
  - DYSPNOEA [None]
